FAERS Safety Report 6020837-5 (Version None)
Quarter: 2008Q4

REPORT INFORMATION
  Report Type: 
  Country: None (occurrence: None)
  Receive Date: 20081229
  Receipt Date: 20081222
  Transmission Date: 20090506
  Serious: Yes (Hospitalization)
  Sender: FDA-Public Use
  Company Number: JP-JNJFOC-20081001282

PATIENT
  Sex: Female
  Weight: 91 kg

DRUGS (17)
  1. RISPERDAL [Suspect]
     Route: 048
  2. RISPERDAL [Suspect]
     Route: 048
  3. RISPERDAL [Suspect]
     Indication: SCHIZOPHRENIA
     Route: 048
  4. MERCAZOLE [Concomitant]
     Indication: BASEDOW'S DISEASE
     Route: 048
  5. AMLODIN [Concomitant]
     Indication: HYPERTENSION
     Route: 048
  6. NULOTAN [Concomitant]
     Indication: HYPERTENSION
     Route: 048
  7. BRECRUS [Concomitant]
     Indication: RHINITIS ALLERGIC
     Route: 048
  8. ALLELOCK [Concomitant]
     Indication: RHINITIS ALLERGIC
     Route: 048
  9. EPADEL S [Concomitant]
     Indication: HYPERLIPIDAEMIA
     Route: 048
  10. MEVALOTIN [Concomitant]
     Indication: HYPERLIPIDAEMIA
     Route: 048
  11. ACTOS [Concomitant]
     Indication: TYPE 2 DIABETES MELLITUS
     Route: 048
  12. TATHION [Concomitant]
     Route: 048
  13. BENZALIN [Concomitant]
     Indication: INSOMNIA
     Route: 048
  14. BASEN [Concomitant]
     Indication: TYPE 2 DIABETES MELLITUS
     Route: 048
  15. LASIX [Concomitant]
     Indication: URINARY RETENTION
     Route: 048
  16. ASPARA POTASSIUM [Concomitant]
     Indication: HYPOKALAEMIA
     Route: 048
  17. RIZABEN [Concomitant]
     Indication: RHINITIS ALLERGIC
     Route: 065

REACTIONS (7)
  - ACTIVITIES OF DAILY LIVING IMPAIRED [None]
  - DYSURIA [None]
  - FALL [None]
  - GAIT DISTURBANCE [None]
  - HYPOKALAEMIA [None]
  - METABOLIC ALKALOSIS [None]
  - MYOPATHY [None]
